FAERS Safety Report 8407595-1 (Version None)
Quarter: 2012Q2

REPORT INFORMATION
  Report Type: 
  Country: None (occurrence: None)
  Receive Date: 20120529
  Receipt Date: 19990609
  Transmission Date: 20120825
  Serious: Yes (Hospitalization, Other)
  Sender: FDA-Public Use
  Company Number: 02100-JPN-99-0080

PATIENT
  Age: 75 Year
  Sex: Male

DRUGS (4)
  1. PLETAL [Suspect]
     Dosage: 100 MG, BID, ORAL
     Route: 048
     Dates: start: 19990428, end: 19990524
  2. LASIX [Concomitant]
  3. BUFFERIN (CAFFEINE, PARACETAMOL, APRONAL, ETHENZAMIDE) [Concomitant]
  4. TANATRIL (IMIDAPRIL HYDROCHLORIDE) [Concomitant]

REACTIONS (2)
  - ASPARTATE AMINOTRANSFERASE INCREASED [None]
  - ALANINE AMINOTRANSFERASE INCREASED [None]
